FAERS Safety Report 6690359-7 (Version None)
Quarter: 2010Q2

REPORT INFORMATION
  Report Type: 
  Country: None (occurrence: None)
  Receive Date: 20100414
  Receipt Date: 20090305
  Transmission Date: 20101027
  Serious: No
  Sender: FDA-Public Use
  Company Number: 09-062

PATIENT
  Age: 64 Year
  Sex: Female

DRUGS (2)
  1. ALEVE [Suspect]
     Indication: ARTHRITIS
     Dosage: 220 MG, QD, ORAL
     Route: 048
     Dates: start: 20090113, end: 20090126
  2. ALEVE [Suspect]
     Indication: BACK PAIN
     Dosage: 220 MG, QD, ORAL
     Route: 048
     Dates: start: 20090113, end: 20090126

REACTIONS (3)
  - INSOMNIA [None]
  - OESOPHAGEAL DISCOMFORT [None]
  - OESOPHAGEAL PAIN [None]
